FAERS Safety Report 5691389-4 (Version None)
Quarter: 2008Q2

REPORT INFORMATION
  Report Type: 
  Country: None (occurrence: None)
  Receive Date: 20080402
  Receipt Date: 20080327
  Transmission Date: 20081010
  Serious: Yes (Other)
  Sender: FDA-Public Use
  Company Number: PHHY2008JP00843

PATIENT
  Age: 4 Year
  Sex: Female

DRUGS (4)
  1. ANTITHYMOCYTE IMMUNOGLOBULIN, EQUINE [Suspect]
     Indication: CORD BLOOD TRANSPLANT THERAPY
     Dosage: 10 MG/KG/DAY
     Route: 065
  2. CYCLOSPORINE [Suspect]
     Indication: CORD BLOOD TRANSPLANT THERAPY
     Route: 048
  3. METHYLPREDNISOLONE [Concomitant]
     Indication: GRAFT VERSUS HOST DISEASE
  4. MYCOPHENOLATE MOFETIL [Concomitant]
     Indication: GRAFT VERSUS HOST DISEASE

REACTIONS (9)
  - BACTERIAL CULTURE POSITIVE [None]
  - BIOPSY SKIN ABNORMAL [None]
  - GRAFT VERSUS HOST DISEASE [None]
  - LYMPH NODE PAIN [None]
  - LYMPHADENOPATHY [None]
  - MYCOBACTERIUM CHELONEI INFECTION [None]
  - RASH [None]
  - SUBCUTANEOUS ABSCESS [None]
  - SUBCUTANEOUS NODULE [None]
